FAERS Safety Report 12688873 (Version 1)
Quarter: 2016Q3

REPORT INFORMATION
  Report Type: Report from Study
  Country: US (occurrence: US)
  Receive Date: 20160825
  Receipt Date: 20160825
  Transmission Date: 20161109
  Serious: Yes (Hospitalization, Other)
  Sender: FDA-Public Use
  Company Number: US-EMD SERONO-E2B_80000555

PATIENT
  Sex: Female

DRUGS (2)
  1. REBIF [Suspect]
     Active Substance: INTERFERON BETA-1A
     Indication: PRODUCT USED FOR UNKNOWN INDICATION
     Route: 058
     Dates: start: 20100505
  2. TEGRETOL [Concomitant]
     Active Substance: CARBAMAZEPINE
     Indication: HEADACHE

REACTIONS (6)
  - Gangrene [Unknown]
  - Muscle spasms [Not Recovered/Not Resolved]
  - Heart rate increased [Not Recovered/Not Resolved]
  - Paraesthesia [Not Recovered/Not Resolved]
  - Salivary hypersecretion [Unknown]
  - Injection site infection [Unknown]

NARRATIVE: CASE EVENT DATE: 2012
